FAERS Safety Report 10160239 (Version 1)
Quarter: 2014Q2

REPORT INFORMATION
  Report Type: Spontaneous
  Country: CN (occurrence: CN)
  Receive Date: 20140508
  Receipt Date: 20140508
  Transmission Date: 20141212
  Serious: Yes (Life-Threatening)
  Sender: FDA-Public Use
  Company Number: CN-BAYER-2014-066633

PATIENT
  Age: 61 Year
  Sex: Female
  Weight: 64 kg

DRUGS (1)
  1. IOPROMIDE [Suspect]
     Indication: IMAGING PROCEDURE
     Dosage: 50 ML, ONCE
     Route: 013
     Dates: start: 20131022, end: 20131022

REACTIONS (3)
  - Anaphylactic shock [Recovered/Resolved]
  - Rash maculo-papular [Recovered/Resolved]
  - Generalised erythema [Recovered/Resolved]
